FAERS Safety Report 12264490 (Version 1)
Quarter: 2016Q2

REPORT INFORMATION
  Report Type: Spontaneous
  Country: US (occurrence: US)
  Receive Date: 20160413
  Receipt Date: 20160413
  Transmission Date: 20160815
  Serious: No
  Sender: FDA-Public Use
  Company Number: US-JNJFOC-20160304170

PATIENT
  Sex: Male
  Weight: 90.72 kg

DRUGS (2)
  1. MENS ROGAINE EXTRA STRENGTH [Suspect]
     Active Substance: MINOXIDIL
     Route: 061
  2. MENS ROGAINE EXTRA STRENGTH [Suspect]
     Active Substance: MINOXIDIL
     Indication: ALOPECIA
     Dosage: BETWEEN 1/2 AND 3/4 CAP
     Route: 061

REACTIONS (4)
  - Expired product administered [Unknown]
  - Drug administered at inappropriate site [Unknown]
  - Drug administration error [Unknown]
  - Therapy change [Unknown]
